FAERS Safety Report 17209825 (Version 1)
Quarter: 2019Q4

REPORT INFORMATION
  Report Type: Spontaneous
  Country: US (occurrence: US)
  Receive Date: 20191227
  Receipt Date: 20191227
  Transmission Date: 20200122
  Serious: No
  Sender: FDA-Public Use
  Company Number: US-SA-2019SA356421

PATIENT
  Sex: Male

DRUGS (1)
  1. PRALUENT [Suspect]
     Active Substance: ALIROCUMAB
     Dosage: 150 MG, QOW

REACTIONS (5)
  - Sinus congestion [Unknown]
  - Headache [Unknown]
  - Throat irritation [Unknown]
  - Nasopharyngitis [Unknown]
  - Sneezing [Unknown]
